FAERS Safety Report 4883052-4 (Version None)
Quarter: 2006Q1

REPORT INFORMATION
  Report Type: 
  Country: None (occurrence: None)
  Receive Date: 20060118
  Receipt Date: 20050419
  Transmission Date: 20060701
  Serious: Yes (Hospitalization, Disabling)
  Sender: FDA-Public Use
  Company Number: PHRM2005FR01321

PATIENT
  Age: 52 Year
  Sex: Male

DRUGS (2)
  1. LEPONEX [Suspect]
     Indication: SCHIZOPHRENIA
     Dosage: 325 MG, DAILY
     Route: 048
     Dates: start: 20040831
  2. LEPONEX [Suspect]
     Dosage: 225 MG, DAILY
     Route: 048
     Dates: start: 20050301

REACTIONS (11)
  - ABNORMAL BEHAVIOUR [None]
  - CEREBELLAR SYNDROME [None]
  - CONFUSIONAL STATE [None]
  - DISORIENTATION [None]
  - DYSARTHRIA [None]
  - EPILEPSY [None]
  - FALL [None]
  - GAIT DISTURBANCE [None]
  - HYPOTENSION [None]
  - TREMOR [None]
  - WHITE BLOOD CELL COUNT INCREASED [None]
